FAERS Safety Report 8006713-7 (Version None)
Quarter: 2011Q4

REPORT INFORMATION
  Report Type: 
  Country: None (occurrence: None)
  Receive Date: 20111227
  Receipt Date: 20111216
  Transmission Date: 20120403
  Serious: Yes (Life-Threatening, Other)
  Sender: FDA-Public Use
  Company Number: US-JNJFOC-20111208108

PATIENT
  Sex: Female
  Weight: 58.97 kg

DRUGS (4)
  1. VITAMIN AND MINERAL PRENATAL SUPPLEMENT W/ FOLIC ACID CAP [Concomitant]
     Indication: VITAMIN SUPPLEMENTATION
     Route: 065
  2. REMICADE [Suspect]
     Indication: PSORIASIS
     Dosage: DOSAGE:EVERY 8TO 10 WEEKS INTERVAL
     Route: 042
     Dates: end: 20110913
  3. REMICADE [Suspect]
     Indication: ARTHRITIS
     Dosage: DOSAGE:EVERY 8TO 10 WEEKS INTERVAL
     Route: 042
     Dates: end: 20110913
  4. FISH OIL [Concomitant]
     Indication: ARTHRITIS
     Route: 065

REACTIONS (2)
  - WEIGHT INCREASED [None]
  - BREAST DISORDER [None]
